FAERS Safety Report 7121169-4 (Version None)
Quarter: 2010Q4

REPORT INFORMATION
  Report Type: 
  Country: None (occurrence: None)
  Receive Date: 20101122
  Receipt Date: 20101122
  Transmission Date: 20110411
  Serious: Yes (Death)
  Sender: FDA-Public Use
  Company Number: None

PATIENT
  Age: 75 Year
  Sex: Female
  Weight: 63.5036 kg

DRUGS (1)
  1. NITROGLYN 2% OINTMENT [Suspect]
     Dates: start: 20080315, end: 20080315

REACTIONS (3)
  - CARDIAC ARREST [None]
  - HYPOTENSION [None]
  - HYPOXIC-ISCHAEMIC ENCEPHALOPATHY [None]
